FAERS Safety Report 21140294 (Version 2)
Quarter: 2022Q4

REPORT INFORMATION
  Report Type: Spontaneous
  Country: US (occurrence: None)
  Receive Date: 20220728
  Receipt Date: 20221030
  Transmission Date: 20230113
  Serious: Yes (Death)
  Sender: FDA-Public Use
  Company Number: US-ROCHE-3148754

PATIENT
  Sex: Female

DRUGS (1)
  1. ESBRIET [Suspect]
     Active Substance: PIRFENIDONE
     Indication: Idiopathic pulmonary fibrosis
     Dosage: TAKE 3 CAPSULES BY MOUTH EVERY 8 HOURS: ONGOING - NO
     Route: 048
     Dates: start: 20190619, end: 20220722

REACTIONS (1)
  - Death [Fatal]

NARRATIVE: CASE EVENT DATE: 20220722
